FAERS Safety Report 12637796 (Version 1)
Quarter: 2016Q3

REPORT INFORMATION
  Report Type: Spontaneous
  Country: US (occurrence: US)
  Receive Date: 20160809
  Receipt Date: 20160809
  Transmission Date: 20161109
  Serious: No
  Sender: FDA-Public Use
  Company Number: US-PERRIGO-15US013496

PATIENT
  Age: 17 Year
  Sex: Female
  Weight: 61.22 kg

DRUGS (2)
  1. LEVOTHYROXINE. [Concomitant]
     Active Substance: LEVOTHYROXINE
     Indication: THYROID DISORDER
     Dosage: UNK
     Route: 065
  2. CLINDAMYCIN PHOSPHATE AND BENZOYL PEROXIDE [Suspect]
     Active Substance: BENZOYL PEROXIDE\CLINDAMYCIN PHOSPHATE
     Indication: ACNE
     Dosage: 1 APPLICATION, NIGHTLY
     Route: 061
     Dates: start: 201511, end: 20151226

REACTIONS (2)
  - Application site rash [Recovering/Resolving]
  - Application site exfoliation [Unknown]

NARRATIVE: CASE EVENT DATE: 201511
